FAERS Safety Report 10042174 (Version 2)
Quarter: 2014Q2

REPORT INFORMATION
  Report Type: Spontaneous
  Country: US (occurrence: US)
  Receive Date: 20140327
  Receipt Date: 20140605
  Transmission Date: 20141212
  Serious: Yes (Death, Hospitalization)
  Sender: FDA-Public Use
  Company Number: US-GLAXOSMITHKLINE-A1065849A

PATIENT
  Age: 53 Year
  Sex: Male

DRUGS (3)
  1. ARIXTRA [Suspect]
     Indication: THROMBOSIS
     Route: 058
  2. UNKNOWN [Concomitant]
  3. ANTICOAGULANT [Concomitant]
     Route: 048

REACTIONS (3)
  - Death [Fatal]
  - Oesophageal carcinoma [Unknown]
  - Condition aggravated [Unknown]
